FAERS Safety Report 4717923-6 (Version None)
Quarter: 2005Q3

REPORT INFORMATION
  Report Type: 
  Country: None (occurrence: None)
  Receive Date: 20050718
  Receipt Date: 20040701
  Transmission Date: 20060218
  Serious: Yes (Other)
  Sender: FDA-Public Use
  Company Number: K200400994

PATIENT
  Sex: Female

DRUGS (2)
  1. LEVOXYL [Suspect]
     Indication: THYROID DISORDER
     Dosage: 25 MCG, QD, IN PM OR AM
  2. LEVOXYL [Suspect]
     Indication: THYROID DISORDER
     Dosage: 25 MCG, QD, IN PM OR AM
     Dates: start: 20030601

REACTIONS (1)
  - CONVULSION [None]
